FAERS Safety Report 8883281 (Version 1)
Quarter: 2012Q4

REPORT INFORMATION
  Report Type: Report from Study
  Country: CA (occurrence: CA)
  Receive Date: 20121102
  Receipt Date: 20121102
  Transmission Date: 20130627
  Serious: Yes (Death, Other)
  Sender: FDA-Public Use
  Company Number: CA-ABBOTT-12P-028-1002045-00

PATIENT
  Age: 83 Year
  Sex: Male
  Weight: 74.91 kg

DRUGS (4)
  1. LUPRON DEPOT [Suspect]
     Indication: PROSTATE CANCER
     Dosage: 22.5
     Route: 058
     Dates: start: 20110927, end: 20120319
  2. CAUSODEX [Concomitant]
     Indication: PRODUCT USED FOR UNKNOWN INDICATION
     Dates: start: 20120320, end: 20120704
  3. ONDASETRAN [Concomitant]
     Indication: PRODUCT USED FOR UNKNOWN INDICATION
     Dates: start: 20120525, end: 20120627
  4. MOXERAN [Concomitant]
     Indication: PRODUCT USED FOR UNKNOWN INDICATION
     Dates: start: 20120627, end: 20120704

REACTIONS (5)
  - Prostate cancer [Fatal]
  - Metastases to liver [Fatal]
  - Metastases to bone [Fatal]
  - Weight decreased [Unknown]
  - Fatigue [Unknown]
